FAERS Safety Report 8410151-2 (Version None)
Quarter: 2012Q2

REPORT INFORMATION
  Report Type: 
  Country: None (occurrence: None)
  Receive Date: 20120605
  Receipt Date: 20120529
  Transmission Date: 20120825
  Serious: Yes (Other)
  Sender: FDA-Public Use
  Company Number: PHHY2012BR047105

PATIENT
  Sex: Male
  Weight: 56 kg

DRUGS (1)
  1. FORMOTEROL FUMARATE [Suspect]
     Indication: ASTHMA
     Dosage: 1 DF, (ONE IN MORNING AND ONE IN NIGHT0

REACTIONS (3)
  - WRONG DRUG ADMINISTERED [None]
  - GASTRIC ULCER [None]
  - ABDOMINAL PAIN UPPER [None]
